FAERS Safety Report 5854490-8 (Version None)
Quarter: 2008Q3

REPORT INFORMATION
  Report Type: 
  Country: None (occurrence: None)
  Receive Date: 20080822
  Receipt Date: 20071018
  Transmission Date: 20090109
  Serious: No
  Sender: FDA-Public Use
  Company Number: US-ABBOTT-07P-163-0376789-00

PATIENT
  Sex: Female
  Weight: 74.91 kg

DRUGS (6)
  1. SYNTHROID [Suspect]
     Indication: HYPOTHYROIDISM
     Route: 048
     Dates: start: 20070802
  2. SYNTHROID [Suspect]
     Route: 048
     Dates: end: 20070701
  3. SYNTHROID [Suspect]
     Dates: start: 20070701, end: 20070801
  4. PHENELZINE [Concomitant]
     Indication: PANIC DISORDER
     Route: 048
     Dates: start: 19860101
  5. CENTRUM [Concomitant]
     Indication: DRUG USE FOR UNKNOWN INDICATION
     Route: 048
  6. CALCIUM [Concomitant]
     Indication: DRUG USE FOR UNKNOWN INDICATION
     Route: 048

REACTIONS (1)
  - TREMOR [None]
